FAERS Safety Report 4852357-5 (Version None)
Quarter: 2005Q4

REPORT INFORMATION
  Report Type: 
  Country: None (occurrence: None)
  Receive Date: 20051209
  Receipt Date: 20051130
  Transmission Date: 20060501
  Serious: Yes (Hospitalization)
  Sender: FDA-Public Use
  Company Number: 2005100026

PATIENT
  Age: 69 Year
  Sex: Female

DRUGS (5)
  1. SORTIS (ATORVASTATIN) [Suspect]
     Indication: DYSLIPIDAEMIA
     Dosage: 20 MG (20 MG, 1 IN 1 D); ORAL
     Route: 048
     Dates: end: 20050607
  2. PREDNISONE [Suspect]
     Indication: ILL-DEFINED DISORDER
     Dosage: (60 MG, )
     Dates: start: 20050101
  3. AZATHIOPRINE SODIUM [Suspect]
     Indication: ILL-DEFINED DISORDER
     Dosage: (200 MG)
     Dates: start: 20050101
  4. APROVEL (IRBESARTAN) [Concomitant]
  5. LEVOTHYROXINE SODIUM [Concomitant]

REACTIONS (10)
  - ALANINE AMINOTRANSFERASE INCREASED [None]
  - APATHY [None]
  - ASPARTATE AMINOTRANSFERASE INCREASED [None]
  - BLOOD LACTATE DEHYDROGENASE INCREASED [None]
  - DIFFICULTY IN WALKING [None]
  - FATIGUE [None]
  - FEAR [None]
  - MOOD ALTERED [None]
  - MYOPATHY [None]
  - WEIGHT DECREASED [None]
